FAERS Safety Report 8118874-X (Version None)
Quarter: 2012Q1

REPORT INFORMATION
  Report Type: 
  Country: None (occurrence: None)
  Receive Date: 20120207
  Receipt Date: 20120127
  Transmission Date: 20120608
  Serious: Yes (Hospitalization, Other)
  Sender: FDA-Public Use
  Company Number: JP-JNJFOC-20090307418

PATIENT
  Age: 60 Year
  Sex: Male

DRUGS (7)
  1. REMICADE [Suspect]
     Route: 042
     Dates: start: 20060601
  2. REMICADE [Suspect]
     Route: 042
     Dates: start: 20081201
  3. LEUKEMIA THERAPEUTIC AGENT [Suspect]
     Indication: MYELOID LEUKAEMIA
  4. REMICADE [Suspect]
     Route: 042
     Dates: start: 20060605
  5. REMICADE [Suspect]
     Route: 042
     Dates: start: 20081215
  6. IMATINIB MESYLATE [Concomitant]
     Indication: CHRONIC MYELOID LEUKAEMIA
     Route: 065
     Dates: start: 20070101
  7. REMICADE [Suspect]
     Indication: CROHN'S DISEASE
     Dosage: INFUSION 2-15 ON UNSPECIFIED DATES
     Route: 042

REACTIONS (2)
  - PULMONARY TUBERCULOSIS [None]
  - CHRONIC MYELOID LEUKAEMIA [None]
